FAERS Safety Report 6184583-X (Version None)
Quarter: 2009Q2

REPORT INFORMATION
  Report Type: 
  Country: None (occurrence: None)
  Receive Date: 20090508
  Receipt Date: 20090427
  Transmission Date: 20091009
  Serious: Yes (Other)
  Sender: FDA-Public Use
  Company Number: PHHY2009DK14998

PATIENT
  Weight: 0.78 kg

DRUGS (2)
  1. DICLOFENAC [Suspect]
     Dosage: 50 MG, TID
     Route: 064
  2. ATOSIBAN [Concomitant]
     Route: 064

REACTIONS (2)
  - DRUG EXPOSURE DURING PREGNANCY [None]
  - PREMATURE BABY [None]
